FAERS Safety Report 18294024 (Version 1)
Quarter: 2020Q3

REPORT INFORMATION
  Report Type: Spontaneous
  Country: US (occurrence: US)
  Receive Date: 20200922
  Receipt Date: 20200922
  Transmission Date: 20201103
  Serious: Yes (Hospitalization)
  Sender: FDA-Public Use
  Company Number: None

PATIENT
  Age: 29 Year
  Sex: Female
  Weight: 72.1 kg

DRUGS (1)
  1. ISOVUE 300 [Suspect]
     Active Substance: IOPAMIDOL
     Indication: LYMPHOMA
     Dosage: ?          OTHER FREQUENCY:ONCE FOR CONTRAST;?
     Route: 042
     Dates: start: 20200921, end: 20200921

REACTIONS (3)
  - Cough [None]
  - Nausea [None]
  - Contrast media reaction [None]

NARRATIVE: CASE EVENT DATE: 20200921
